FAERS Safety Report 13941592 (Version 2)
Quarter: 2017Q4

REPORT INFORMATION
  Report Type: Spontaneous
  Country: TH (occurrence: TH)
  Receive Date: 20170906
  Receipt Date: 20171019
  Transmission Date: 20180320
  Serious: Yes (Death, Life-Threatening)
  Sender: FDA-Public Use
  Company Number: TH-CELGENEUS-THA-20170809163

PATIENT

DRUGS (4)
  1. AZACITIDINE. [Suspect]
     Active Substance: AZACITIDINE
     Indication: ACUTE MYELOID LEUKAEMIA
     Route: 065
     Dates: end: 20160916
  2. CYTARABINE. [Concomitant]
     Active Substance: CYTARABINE
     Indication: ACUTE MYELOID LEUKAEMIA
     Route: 065
     Dates: start: 20160905, end: 201609
  3. MEROPENEM. [Concomitant]
     Active Substance: MEROPENEM
     Indication: PRODUCT USED FOR UNKNOWN INDICATION
     Route: 065
  4. VANCOMYCIN [Concomitant]
     Active Substance: VANCOMYCIN
     Indication: PRODUCT USED FOR UNKNOWN INDICATION
     Route: 065

REACTIONS (7)
  - Ludwig angina [Unknown]
  - Febrile neutropenia [Unknown]
  - Acute myeloid leukaemia [Fatal]
  - Infection [Not Recovered/Not Resolved]
  - Pneumonia aspiration [Unknown]
  - Dental caries [Unknown]
  - Septic shock [Unknown]

NARRATIVE: CASE EVENT DATE: 19590817
